FAERS Safety Report 8261227-4 (Version None)
Quarter: 2012Q2

REPORT INFORMATION
  Report Type: 
  Country: None (occurrence: None)
  Receive Date: 20120405
  Receipt Date: 20120326
  Transmission Date: 20120825
  Serious: Yes (Hospitalization, Other)
  Sender: FDA-Public Use
  Company Number: US-ELI_LILLY_AND_COMPANY-US201202004811

PATIENT
  Sex: Male

DRUGS (7)
  1. HUMALOG [Suspect]
     Dosage: UNK, UNKNOWN
     Route: 065
  2. HUMALOG [Suspect]
     Indication: TYPE 1 DIABETES MELLITUS
     Dosage: 38 U, QD
  3. HUMALOG [Suspect]
  4. NOVOLOG [Concomitant]
     Dosage: UNK
  5. HUMULIN 70/30 [Suspect]
     Indication: TYPE 1 DIABETES MELLITUS
  6. LANTUS [Concomitant]
     Dosage: UNK
  7. HUMALOG [Suspect]
     Dosage: 38 U, QD

REACTIONS (10)
  - THERAPEUTIC RESPONSE UNEXPECTED [None]
  - VISUAL ACUITY REDUCED [None]
  - BRONCHITIS [None]
  - HOSPITALISATION [None]
  - KETOACIDOSIS [None]
  - WEIGHT INCREASED [None]
  - BLOOD GLUCOSE ABNORMAL [None]
  - WEIGHT DECREASED [None]
  - PNEUMONIA [None]
  - INJECTION SITE PAIN [None]
